FAERS Safety Report 9717516 (Version 2)
Quarter: 2013Q4

REPORT INFORMATION
  Report Type: Spontaneous
  Country: US (occurrence: US)
  Receive Date: 20131127
  Receipt Date: 20131127
  Transmission Date: 20140711
  Serious: No
  Sender: FDA-Public Use
  Company Number: US-GILEAD-2008-0019626

PATIENT
  Age: 64 Year
  Sex: Male
  Weight: 86.64 kg

DRUGS (16)
  1. LETAIRIS [Suspect]
     Indication: PULMONARY ARTERIAL HYPERTENSION
     Route: 048
     Dates: start: 20071015
  2. REVATIO [Concomitant]
  3. DIGOXIN [Concomitant]
  4. PLAVIX [Concomitant]
  5. COUMADIN [Concomitant]
  6. METOPROLOL [Concomitant]
  7. ASA [Concomitant]
  8. COMBIVENT [Concomitant]
  9. ADVAIR [Concomitant]
  10. ZYLOPRIM [Concomitant]
  11. OXYCODONE-ACETAMINOPHEN [Concomitant]
  12. FENTANYL [Concomitant]
  13. XANAX [Concomitant]
  14. VALIUM [Concomitant]
  15. COLCHICINE [Concomitant]
  16. VITAMIN D2 [Concomitant]

REACTIONS (1)
  - Myalgia [Not Recovered/Not Resolved]
